FAERS Safety Report 10249888 (Version 3)
Quarter: 2014Q3

REPORT INFORMATION
  Report Type: Spontaneous
  Country: US (occurrence: US)
  Receive Date: 20140620
  Receipt Date: 20140804
  Transmission Date: 20150326
  Serious: No
  Sender: FDA-Public Use
  Company Number: US-PFIZER INC-2014165393

PATIENT
  Age: 83 Year
  Sex: Female
  Weight: 79.37 kg

DRUGS (1)
  1. LYRICA [Suspect]
     Active Substance: PREGABALIN
     Indication: NEURALGIA
     Dosage: 75 MG, EVERY 8 HOURS
     Route: 048
     Dates: start: 201406, end: 201406

REACTIONS (6)
  - Communication disorder [Unknown]
  - Dyspnoea [Unknown]
  - Thinking abnormal [Unknown]
  - Hypokinesia [Unknown]
  - Feeling abnormal [Unknown]
  - Hypoaesthesia [Unknown]

NARRATIVE: CASE EVENT DATE: 201406
